FAERS Safety Report 12252590 (Version 1)
Quarter: 2016Q2

REPORT INFORMATION
  Report Type: Spontaneous
  Country: US (occurrence: None)
  Receive Date: 20160408
  Receipt Date: 20160408
  Transmission Date: 20160815
  Serious: Yes (Other)
  Sender: FDA-Public Use
  Company Number: None

PATIENT
  Age: 47 Year
  Sex: Male

DRUGS (1)
  1. SUTENT [Suspect]
     Active Substance: SUNITINIB MALATE
     Indication: NEOPLASM MALIGNANT
     Route: 048
     Dates: start: 20160121

REACTIONS (4)
  - Gastrointestinal infection [None]
  - Oncologic complication [None]
  - Tumour rupture [None]
  - Therapy cessation [None]

NARRATIVE: CASE EVENT DATE: 20160406
